FAERS Safety Report 8963696 (Version 1)
Quarter: 2012Q4

REPORT INFORMATION
  Report Type: 
  Country: CA (occurrence: CA)
  Receive Date: 20121213
  Receipt Date: 20121213
  Transmission Date: 20130627
  Serious: Yes (Other)
  Sender: FDA-Public Use
  Company Number: CA-PURDUE-CAN-2012-0003576

PATIENT
  Age: 27 Year
  Sex: Female
  Weight: 36.28 kg

DRUGS (3)
  1. OXYCONTIN TABLETS [Suspect]
     Indication: PRODUCT USED FOR UNKNOWN INDICATION
     Dosage: unk
     Route: 042
  2. OXYCONTIN TABLETS [Suspect]
     Indication: PAIN
  3. FENTANYL [Suspect]
     Indication: PRODUCT USED FOR UNKNOWN INDICATION
     Dosage: UNK
     Route: 065

REACTIONS (7)
  - Drug dependence [Unknown]
  - Substance abuse [Unknown]
  - Abscess limb [Unknown]
  - Weight decreased [Unknown]
  - Exposure during pregnancy [Unknown]
  - Drug tolerance increased [Unknown]
  - Euphoric mood [Unknown]
